FAERS Safety Report 25675245 (Version 2)
Quarter: 2025Q3

REPORT INFORMATION
  Report Type: Spontaneous
  Country: US (occurrence: US)
  Receive Date: 20250813
  Receipt Date: 20250825
  Transmission Date: 20251020
  Serious: No
  Sender: SUNOVION
  Company Number: US-SMPA-2025SPA010160

PATIENT
  Age: 45 Year
  Sex: Female

DRUGS (1)
  1. MYFEMBREE [Suspect]
     Active Substance: ESTRADIOL HEMIHYDRATE\NORETHINDRONE ACETATE\RELUGOLIX
     Indication: Product used for unknown indication
     Route: 048

REACTIONS (1)
  - Glucose tolerance impaired [Unknown]
